FAERS Safety Report 10404706 (Version 1)
Quarter: 2014Q3

REPORT INFORMATION
  Report Type: Spontaneous
  Country: US (occurrence: US)
  Receive Date: 20140824
  Receipt Date: 20140824
  Transmission Date: 20150326
  Serious: Yes (Other)
  Sender: FDA-Public Use
  Company Number: US-AMGEN-USASP2014063310

PATIENT
  Age: 73 Year
  Sex: Female

DRUGS (4)
  1. OXAMYCEN [Concomitant]
     Indication: BREAST CANCER
     Dosage: UNK UNK, EVERY 2 WEEKS
  2. CYTOXAN [Concomitant]
     Active Substance: CYCLOPHOSPHAMIDE
     Indication: BREAST CANCER
     Dosage: UNK UNK, EVERY 2 WEEKS
  3. NEULASTA [Suspect]
     Active Substance: PEGFILGRASTIM
     Indication: PRODUCT USED FOR UNKNOWN INDICATION
     Dosage: UNK
     Route: 065
  4. TAXOL [Suspect]
     Active Substance: PACLITAXEL
     Indication: BREAST CANCER
     Dosage: UNK UNK, EVERY WEEK
     Route: 065

REACTIONS (10)
  - Influenza like illness [Unknown]
  - Bone pain [Unknown]
  - Neuropathy peripheral [Unknown]
  - Headache [Unknown]
  - Cholecystectomy [Unknown]
  - Myalgia [Unknown]
  - Blood bilirubin abnormal [Unknown]
  - Neutrophil count decreased [Unknown]
  - Fatigue [Unknown]
  - Pyrexia [Unknown]
